FAERS Safety Report 5289647-0 (Version None)
Quarter: 2007Q2

REPORT INFORMATION
  Report Type: 
  Country: None (occurrence: None)
  Receive Date: 20070406
  Receipt Date: 20070327
  Transmission Date: 20071010
  Serious: Yes (Hospitalization)
  Sender: FDA-Public Use
  Company Number: FR-MERCK-0703FRA00100

PATIENT
  Age: 57 Year
  Sex: Female

DRUGS (9)
  1. EMEND [Suspect]
     Indication: PROPHYLAXIS OF NAUSEA AND VOMITING
     Route: 048
  2. EMEND [Suspect]
     Route: 048
  3. IFOSFAMIDE [Suspect]
     Indication: OSTEOSARCOMA METASTATIC
     Route: 042
  4. IFOSFAMIDE [Suspect]
     Route: 042
  5. DOXORUBICIN [Concomitant]
     Indication: OSTEOSARCOMA METASTATIC
     Route: 042
  6. DOXORUBICIN [Concomitant]
     Route: 041
  7. ONDANSETRON [Concomitant]
     Indication: PROPHYLAXIS OF NAUSEA AND VOMITING
     Route: 042
  8. METHYLPREDNISOLONE [Concomitant]
     Indication: PROPHYLAXIS OF NAUSEA AND VOMITING
     Route: 042
  9. CISPLATIN [Concomitant]
     Indication: OSTEOSARCOMA METASTATIC
     Route: 041

REACTIONS (2)
  - DRUG INTERACTION [None]
  - ENCEPHALOPATHY [None]
